FAERS Safety Report 25450929 (Version 1)
Quarter: 2025Q2

REPORT INFORMATION
  Report Type: Spontaneous
  Country: US (occurrence: None)
  Receive Date: 20250618
  Receipt Date: 20250618
  Transmission Date: 20250717
  Serious: Yes (Other)
  Sender: FDA-CTU
  Company Number: None

PATIENT
  Age: 40 Year
  Sex: Female
  Weight: 81 kg

DRUGS (8)
  1. AJOVY [Suspect]
     Active Substance: FREMANEZUMAB-VFRM
     Indication: Migraine
     Dates: start: 20250602
  2. UBRELVY [Concomitant]
     Active Substance: UBROGEPANT
  3. AJOVY [Concomitant]
     Active Substance: FREMANEZUMAB-VFRM
  4. BUPROPION [Concomitant]
     Active Substance: BUPROPION
  5. LISDEXAMFETAMINE [Concomitant]
     Active Substance: LISDEXAMFETAMINE
  6. VOQUEZNA [Concomitant]
     Active Substance: VONOPRAZAN FUMARATE
  7. ZYRTEC [Concomitant]
     Active Substance: CETIRIZINE HYDROCHLORIDE
  8. VITAMIN D2 [Concomitant]
     Active Substance: ERGOCALCIFEROL

REACTIONS (2)
  - Dyspepsia [None]
  - Eructation [None]

NARRATIVE: CASE EVENT DATE: 20250609
